FAERS Safety Report 16600177 (Version 1)
Quarter: 2019Q3

REPORT INFORMATION
  Report Type: Spontaneous
  Country: FR (occurrence: FR)
  Receive Date: 20190720
  Receipt Date: 20190720
  Transmission Date: 20191004
  Serious: Yes (Death, Hospitalization, Other)
  Sender: FDA-Public Use
  Company Number: FR-BRISTOL-MYERS SQUIBB COMPANY-BMS-2019-069019

PATIENT
  Age: 73 Year
  Sex: Male
  Weight: 93 kg

DRUGS (2)
  1. COUMADINE [Suspect]
     Active Substance: WARFARIN SODIUM
     Indication: ATRIAL FIBRILLATION
     Route: 048
     Dates: start: 20150211, end: 20150217
  2. LOVENOX [Suspect]
     Active Substance: ENOXAPARIN SODIUM
     Indication: TRANSIENT ISCHAEMIC ATTACK
     Route: 058
     Dates: start: 20150217, end: 20150224

REACTIONS (2)
  - Intra-abdominal haematoma [Recovered/Resolved]
  - Pleural effusion [Recovered/Resolved]

NARRATIVE: CASE EVENT DATE: 20150224
